FAERS Safety Report 19168461 (Version 2)
Quarter: 2021Q3

REPORT INFORMATION
  Report Type: Spontaneous
  Country: US (occurrence: US)
  Receive Date: 20210422
  Receipt Date: 20210726
  Transmission Date: 20211014
  Serious: Yes (Other)
  Sender: FDA-Public Use
  Company Number: US-EMD SERONO-9231963

PATIENT
  Age: 53 Year
  Sex: Male
  Weight: 83 kg

DRUGS (9)
  1. REBIF [Suspect]
     Active Substance: INTERFERON BETA-1A
     Indication: MULTIPLE SCLEROSIS
     Route: 058
     Dates: start: 2014
  2. PREGABALIN. [Concomitant]
     Active Substance: PREGABALIN
     Indication: PAIN
     Route: 048
     Dates: start: 20200804
  3. CARBAMAZEPINE SANDOZ [Concomitant]
     Active Substance: CARBAMAZEPINE
     Indication: TRIGEMINAL NEURALGIA
     Route: 048
     Dates: start: 20200727
  4. MULTIVITAMIN                       /00097801/ [Concomitant]
     Active Substance: VITAMINS
     Indication: PRODUCT USED FOR UNKNOWN INDICATION
     Route: 048
  5. ERGOCALCIFEROL. [Concomitant]
     Active Substance: ERGOCALCIFEROL
     Indication: VITAMIN D DECREASED
     Dosage: DOSE (02 TO 50,000 UNIT)
     Route: 048
  6. ENSURE [Concomitant]
     Active Substance: AMINO ACIDS\DEXTROSE\ELECTROLYTES NOS\SOYBEAN OIL\VITAMINS
     Indication: NUTRITIONAL SUPPLEMENTATION
     Dosage: CHOCOLATE/STRAWBERRY LIQUID TAKE 1 CAN, EVERY DAY
     Route: 048
  7. CARBAMIDE PEROXIDE [Concomitant]
     Active Substance: CARBAMIDE PEROXIDE
     Indication: EXCESSIVE CERUMEN PRODUCTION
     Dosage: TWO DROPS OF 6.5% OTIC SOLUTION
  8. CARBAMAZEPINE. [Concomitant]
     Active Substance: CARBAMAZEPINE
     Indication: PRODUCT USED FOR UNKNOWN INDICATION
     Dosage: PRASCO SA CAPSULE
     Route: 048
  9. REBIF [Suspect]
     Active Substance: INTERFERON BETA-1A
     Route: 058
     Dates: start: 20181010, end: 20210408

REACTIONS (13)
  - Treatment noncompliance [Unknown]
  - Atelectasis [Unknown]
  - Feeling cold [Unknown]
  - Trigeminal neuralgia [Unknown]
  - Condition aggravated [Unknown]
  - Fatigue [Unknown]
  - Pancytopenia [Not Recovered/Not Resolved]
  - Libido decreased [Unknown]
  - Weight decreased [Unknown]
  - Organic erectile dysfunction [Unknown]
  - Plasma cell myeloma [Not Recovered/Not Resolved]
  - Syncope [Unknown]
  - Night sweats [Unknown]

NARRATIVE: CASE EVENT DATE: 20210304
